FAERS Safety Report 13591693 (Version 1)
Quarter: 2017Q2

REPORT INFORMATION
  Report Type: Spontaneous
  Country: US (occurrence: US)
  Receive Date: 20170530
  Receipt Date: 20170530
  Transmission Date: 20170830
  Serious: No
  Sender: FDA-Public Use
  Company Number: None

PATIENT
  Age: 2 Year
  Sex: Male
  Weight: 16.2 kg

DRUGS (1)
  1. NEUTROGENA WET SKIN KIDS BEACH AND POOL SUNBLOCK SPF 70 [Suspect]
     Active Substance: AVOBENZONE\HOMOSALATE\OCTISALATE\OCTOCRYLENE\OXYBENZONE
     Indication: PROPHYLAXIS AGAINST SOLAR RADIATION
     Route: 061
     Dates: start: 20170517, end: 20170519

REACTIONS (2)
  - Application site erythema [None]
  - Application site vesicles [None]

NARRATIVE: CASE EVENT DATE: 20170519
